FAERS Safety Report 8972028 (Version 1)
Quarter: 2012Q4

REPORT INFORMATION
  Report Type: 
  Country: NG (occurrence: NG)
  Receive Date: 20121218
  Receipt Date: 20121218
  Transmission Date: 20130627
  Serious: Yes (Other)
  Sender: FDA-Public Use
  Company Number: PHHY2012NG115379

PATIENT
  Sex: Female

DRUGS (2)
  1. SIMVASTATIN [Suspect]
     Indication: DYSLIPIDAEMIA
     Dosage: 20 mg, at night
  2. SIMVASTATIN [Suspect]
     Dosage: 10 mg, at night

REACTIONS (6)
  - Memory impairment [Recovered/Resolved]
  - Amnesia [Recovered/Resolved]
  - Incoherent [Recovered/Resolved]
  - Reading disorder [Recovered/Resolved]
  - Muscle spasms [Unknown]
  - Myalgia [Unknown]
